FAERS Safety Report 9283892 (Version 1)
Quarter: 2013Q2

REPORT INFORMATION
  Report Type: Spontaneous
  Country: US (occurrence: US)
  Receive Date: 20130510
  Receipt Date: 20130510
  Transmission Date: 20140414
  Serious: Yes (Life-Threatening, Hospitalization)
  Sender: FDA-Public Use
  Company Number: US-ASTRAZENECA-2013SE01934

PATIENT
  Age: 112 Day
  Sex: Female
  Weight: 2.7 kg

DRUGS (2)
  1. SYNAGIS [Suspect]
     Indication: ANTIVIRAL PROPHYLAXIS
     Route: 030
     Dates: start: 20121012, end: 20121114
  2. SYNAGIS [Suspect]
     Indication: ANTIVIRAL PROPHYLAXIS
     Dosage: ON 05-FEB-2013 55 MG, ON 06-MAR-2013 65 MG
     Route: 030
     Dates: start: 20130103, end: 20130306

REACTIONS (3)
  - Vomiting [Unknown]
  - Diarrhoea [Unknown]
  - Respiratory syncytial virus infection [Recovered/Resolved]
